FAERS Safety Report 8683688 (Version 2)
Quarter: 2013Q1

REPORT INFORMATION
  Report Type: Spontaneous
  Country: US (occurrence: US)
  Receive Date: 20120726
  Receipt Date: 20121218
  Transmission Date: 20140127
  Serious: Yes (Other)
  Sender: FDA-Public Use
  Company Number: PHEH2012US014457

PATIENT
  Age: 71 Year
  Sex: Female

DRUGS (1)
  1. ZOMETA (ZOLEDRONATE) UNKNOWN [Suspect]
     Dosage: UNK UKN, EVERY 6 MONTHS

REACTIONS (1)
  - Osteonecrosis of jaw [Unknown]
